FAERS Safety Report 9528039 (Version 1)
Quarter: 2013Q1

REPORT INFORMATION
  Report Type: Spontaneous
  Country: US (occurrence: None)
  Receive Date: 20130314
  Receipt Date: 20130314
  Transmission Date: 20140127
  Serious: No
  Sender: FDA-Public Use
  Company Number: 1211USA010114

PATIENT
  Age: 65 Year
  Sex: Male

DRUGS (3)
  1. VICTRELIS [Suspect]
     Indication: HEPATITIS C
     Route: 048
     Dates: start: 20120627
  2. PEGASYS (PEGINTERFERON ALFA-2A) [Suspect]
  3. RIBAVIRIN (RIBAVIRIN) CAPSULE [Suspect]
     Route: 048

REACTIONS (8)
  - Mood swings [None]
  - Asthenia [None]
  - Insomnia [None]
  - Energy increased [None]
  - Haemoglobin decreased [None]
  - Influenza like illness [None]
  - Hyperhidrosis [None]
  - Pain [None]
